FAERS Safety Report 17580015 (Version 2)
Quarter: 2020Q2

REPORT INFORMATION
  Report Type: Spontaneous
  Country: HR (occurrence: HR)
  Receive Date: 20200325
  Receipt Date: 20200411
  Transmission Date: 20200713
  Serious: Yes (Hospitalization, Other)
  Sender: FDA-Public Use
  Company Number: NVSC2020HR068521

PATIENT
  Age: 44 Year
  Sex: Female

DRUGS (8)
  1. DASSELTA [Concomitant]
     Active Substance: DESLORATADINE
     Indication: DERMATITIS ATOPIC
     Dosage: 5 MG, UNKNOWN
     Route: 048
  2. CELIXIB [Concomitant]
     Active Substance: CELECOXIB
     Indication: PRODUCT USED FOR UNKNOWN INDICATION
     Dosage: 100 MG, UNKNOWN
     Route: 048
  3. TRAMAL [Concomitant]
     Active Substance: TRAMADOL
     Indication: PRODUCT USED FOR UNKNOWN INDICATION
     Dosage: 50 OT, PRN
     Route: 048
  4. NORMABEL [Concomitant]
     Active Substance: DIAZEPAM
     Indication: PSORIATIC ARTHROPATHY
     Dosage: 5 MG, UNKNOWN
     Route: 048
  5. FOLACIN [Concomitant]
     Indication: PRODUCT USED FOR UNKNOWN INDICATION
     Dosage: 5 MG, UNKNOWN
     Route: 048
  6. KORDOBIS [Concomitant]
     Active Substance: BISOPROLOL FUMARATE
     Indication: HYPERTENSION
     Dosage: UNK
     Route: 065
     Dates: end: 202001
  7. COSENTYX [Suspect]
     Active Substance: SECUKINUMAB
     Indication: PSORIASIS
     Dosage: 300 MG, UNKNOWN
     Route: 058
  8. COSENTYX [Suspect]
     Active Substance: SECUKINUMAB
     Dosage: UNK
     Route: 065
     Dates: start: 20200220

REACTIONS (7)
  - Syncope [Unknown]
  - Eczema [Unknown]
  - Rash [Recovering/Resolving]
  - Pruritus [Unknown]
  - Hypersensitivity vasculitis [Recovering/Resolving]
  - Cough [Unknown]
  - Hypersensitivity [Recovered/Resolved]

NARRATIVE: CASE EVENT DATE: 20200210
